FAERS Safety Report 7351028-3 (Version None)
Quarter: 2011Q1

REPORT INFORMATION
  Report Type: 
  Country: None (occurrence: None)
  Receive Date: 20110314
  Receipt Date: 20110310
  Transmission Date: 20110831
  Serious: No
  Sender: FDA-Public Use
  Company Number: US-TEVA-270925USA

PATIENT
  Sex: Female
  Weight: 154.36 kg

DRUGS (4)
  1. LOMOTIL [Concomitant]
     Indication: DIARRHOEA
  2. ALBUTEROL SULFATE AUTOHALER [Suspect]
     Indication: ASTHMA
     Route: 055
     Dates: start: 20100101, end: 20100101
  3. RANITIDINE [Concomitant]
     Indication: ABDOMINAL DISCOMFORT
  4. NORLESTRIN FE [Concomitant]
     Indication: CONTRACEPTION

REACTIONS (2)
  - EPIGLOTTITIS [None]
  - STOMATITIS [None]
